FAERS Safety Report 6547454-2 (Version None)
Quarter: 2010Q1

REPORT INFORMATION
  Report Type: 
  Country: None (occurrence: None)
  Receive Date: 20100122
  Receipt Date: 20100113
  Transmission Date: 20100710
  Serious: Yes (Life-Threatening, Other)
  Sender: FDA-Public Use
  Company Number: GB-ABBOTT-09P-167-0600247-00

PATIENT
  Sex: Male
  Weight: 142 kg

DRUGS (6)
  1. HUMIRA [Suspect]
     Indication: ANKYLOSING SPONDYLITIS
     Dates: start: 20060101
  2. CITALOPRAM HYDROBROMIDE [Concomitant]
     Indication: DEPRESSION
     Route: 048
  3. DIAZEPAM [Concomitant]
     Indication: BACK PAIN
     Dosage: AS REQUIRED DAILY
     Route: 048
  4. ETORICOXIB [Concomitant]
     Indication: ANKYLOSING SPONDYLITIS
     Route: 048
  5. CO-CODAMOL [Concomitant]
     Indication: DRUG USE FOR UNKNOWN INDICATION
     Dosage: PRN
     Route: 048
  6. PIRITON [Concomitant]
     Indication: DRUG USE FOR UNKNOWN INDICATION
     Dosage: PRN
     Route: 048

REACTIONS (2)
  - RENAL IMPAIRMENT [None]
  - WEGENER'S GRANULOMATOSIS [None]
